FAERS Safety Report 6259842-2 (Version None)
Quarter: 2009Q3

REPORT INFORMATION
  Report Type: 
  Country: None (occurrence: None)
  Receive Date: 20090708
  Receipt Date: 20090515
  Transmission Date: 20100115
  Serious: Yes (Other)
  Sender: FDA-Public Use
  Company Number: US-BAYER-200920277NA

PATIENT
  Age: 42 Year
  Sex: Male
  Weight: 112 kg

DRUGS (26)
  1. MAGNEVIST [Suspect]
     Indication: VENOGRAM
     Dosage: WITH CARBON DIOXIDE
     Dates: start: 20040715, end: 20040715
  2. MAGNEVIST [Suspect]
     Dates: start: 20050513, end: 20050513
  3. MS CONTIN [Concomitant]
     Indication: PAIN
  4. ROXANOL [Concomitant]
     Indication: PAIN
  5. TACROLIMUS [Concomitant]
  6. LEVOTHYROXINE SODIUM [Concomitant]
  7. PROMETHAZINE HCL [Concomitant]
  8. CORTEF [Concomitant]
  9. VALGANCICLOVIR HCL [Concomitant]
  10. PROGRAF [Concomitant]
  11. PROZAC [Concomitant]
  12. CALCIUM [Concomitant]
  13. PHOSLO [Concomitant]
  14. NORVASC [Concomitant]
  15. SIMULECT [Concomitant]
  16. FLEXERIL [Concomitant]
  17. ARANESP [Concomitant]
  18. COUMADIN [Concomitant]
  19. VALCYTE [Concomitant]
  20. LASIX [Concomitant]
  21. CO2 [Concomitant]
  22. ORAL CONTRAST NOS [Concomitant]
  23. TECHNETIUM99 [Concomitant]
     Indication: SCAN
     Dates: start: 20040209, end: 20040209
  24. ULTRAVIST 150 [Concomitant]
  25. EPOGEN [Concomitant]
  26. PROCRIT [Concomitant]

REACTIONS (15)
  - ARTHRALGIA [None]
  - ERYTHEMA [None]
  - EXTREMITY CONTRACTURE [None]
  - JOINT RANGE OF MOTION DECREASED [None]
  - MUSCULOSKELETAL PAIN [None]
  - NEPHROGENIC SYSTEMIC FIBROSIS [None]
  - OEDEMA PERIPHERAL [None]
  - PAIN IN EXTREMITY [None]
  - PERONEAL NERVE PALSY [None]
  - RASH [None]
  - SKIN DISORDER [None]
  - SKIN HYPERPIGMENTATION [None]
  - SKIN HYPERTROPHY [None]
  - SKIN INDURATION [None]
  - SKIN ULCER [None]
